FAERS Safety Report 9192645 (Version 1)
Quarter: 2013Q1

REPORT INFORMATION
  Report Type: Spontaneous
  Country: JP (occurrence: JP)
  Receive Date: 20130327
  Receipt Date: 20130327
  Transmission Date: 20140127
  Serious: Yes (Other)
  Sender: FDA-Public Use
  Company Number: JP-SANOFI-AVENTIS-2013SA031140

PATIENT
  Sex: 0

DRUGS (1)
  1. ONETAXOTERE [Suspect]
     Indication: GASTRIC CANCER
     Route: 042

REACTIONS (1)
  - Cerebral infarction [Unknown]
